FAERS Safety Report 20772835 (Version 8)
Quarter: 2024Q1

REPORT INFORMATION
  Report Type: Spontaneous
  Country: US (occurrence: US)
  Receive Date: 20220502
  Receipt Date: 20240116
  Transmission Date: 20240410
  Serious: Yes (Other)
  Sender: FDA-Public Use
  Company Number: US-BRISTOL-MYERS SQUIBB COMPANY-2022-017408

PATIENT
  Age: 79 Year
  Sex: Male
  Weight: 70.31 kg

DRUGS (1)
  1. POMALYST [Suspect]
     Active Substance: POMALIDOMIDE
     Indication: Plasma cell myeloma
     Dosage: FREQUENCY- 3 WKS ON,1 WK OFF
     Route: 048
     Dates: start: 202203

REACTIONS (15)
  - Back pain [Unknown]
  - Nervousness [Unknown]
  - Fatigue [Unknown]
  - Constipation [Unknown]
  - Hypoaesthesia [Unknown]
  - Paraesthesia [Unknown]
  - Bone pain [Unknown]
  - Dysuria [Recovering/Resolving]
  - Erectile dysfunction [Recovering/Resolving]
  - Muscle spasms [Unknown]
  - Memory impairment [Unknown]
  - Amnesia [Unknown]
  - Tremor [Unknown]
  - Rash [Not Recovered/Not Resolved]
  - Pollakiuria [Unknown]

NARRATIVE: CASE EVENT DATE: 20220402
